FAERS Safety Report 10662749 (Version 3)
Quarter: 2015Q1

REPORT INFORMATION
  Report Type: Report from Study
  Country: CA (occurrence: CA)
  Receive Date: 20141218
  Receipt Date: 20150323
  Transmission Date: 20150720
  Serious: Yes (Hospitalization)
  Sender: FDA-Public Use
  Company Number: CA-EXELIXIS-XL18414005011

PATIENT
  Age: 74 Year
  Sex: Female
  Weight: 91.4 kg

DRUGS (20)
  1. MAGNESIUM [Concomitant]
     Active Substance: MAGNESIUM
  2. COVERSYL [Concomitant]
     Active Substance: PERINDOPRIL
  3. METAMUCIL [Concomitant]
     Active Substance: PLANTAGO SEED
  4. XL184 [Suspect]
     Active Substance: CABOZANTINIB
     Indication: RENAL CELL CARCINOMA
     Dosage: 60 MG, QD
     Route: 048
     Dates: start: 20140910, end: 20141203
  5. SYNTHROID [Concomitant]
     Active Substance: LEVOTHYROXINE SODIUM
  6. ARTHROTEC [Concomitant]
     Active Substance: DICLOFENAC SODIUM\MISOPROSTOL
  7. DILTIAZEM SANDOZ [Concomitant]
     Active Substance: DILTIAZEM HYDROCHLORIDE
  8. MAXERAN [Concomitant]
     Active Substance: METOCLOPRAMIDE HYDROCHLORIDE
  9. ELAVIL [Concomitant]
     Active Substance: AMITRIPTYLINE HYDROCHLORIDE
  10. FLOVENT [Concomitant]
     Active Substance: FLUTICASONE PROPIONATE
  11. FOLATE [Concomitant]
     Active Substance: FOLATE SODIUM
  12. LAX-A-DAY [Concomitant]
  13. XL184 [Suspect]
     Active Substance: CABOZANTINIB
     Dosage: 60 MG, QD
     Route: 048
     Dates: start: 20141210
  14. VENTOLIN [Concomitant]
     Active Substance: ALBUTEROL SULFATE
  15. DIOVOL [Concomitant]
  16. ZOPICLONE [Concomitant]
     Active Substance: ZOPICLONE
  17. FERAMAX [Concomitant]
     Active Substance: IRON\POLYSACCHARIDES
  18. VITAMIN D [Concomitant]
     Active Substance: CHOLECALCIFEROL
  19. FLONASE [Concomitant]
     Active Substance: FLUTICASONE PROPIONATE
  20. MILK OF MAGNESIA [Concomitant]
     Active Substance: MAGNESIUM HYDROXIDE

REACTIONS (3)
  - Blood potassium increased [None]
  - Atelectasis [None]
  - Pleural effusion [Recovered/Resolved]

NARRATIVE: CASE EVENT DATE: 20141125
